FAERS Safety Report 23214943 (Version 3)
Quarter: 2024Q1

REPORT INFORMATION
  Report Type: Spontaneous
  Country: US (occurrence: US)
  Receive Date: 20231122
  Receipt Date: 20240112
  Transmission Date: 20240410
  Serious: No
  Sender: FDA-Public Use
  Company Number: US-SA-SAC20231115000273

PATIENT
  Age: 28 Year
  Sex: Male

DRUGS (2)
  1. ELOCTATE [Suspect]
     Active Substance: EFMOROCTOCOG ALFA
     Dosage: 4000 U (+/- 10%), PRN AS NEEDED FOR BLEEDS
     Route: 042
  2. ELOCTATE [Suspect]
     Active Substance: EFMOROCTOCOG ALFA
     Dosage: 4000 U (+/- 10%), PRN AS NEEDED FOR BLEEDS
     Route: 042

REACTIONS (7)
  - Haematoma [Unknown]
  - Fall [Unknown]
  - Joint injury [Unknown]
  - Traumatic haemorrhage [Unknown]
  - Joint swelling [Unknown]
  - Arthralgia [Unknown]
  - Ankle operation [Unknown]

NARRATIVE: CASE EVENT DATE: 20231105
